FAERS Safety Report 8237202-2 (Version None)
Quarter: 2012Q1

REPORT INFORMATION
  Report Type: 
  Country: None (occurrence: None)
  Receive Date: 20120327
  Receipt Date: 20120327
  Transmission Date: 20120608
  Serious: No
  Sender: FDA-Public Use
  Company Number: None

PATIENT
  Age: 53 Year
  Sex: Male

DRUGS (2)
  1. REVLIMID [Suspect]
     Indication: MULTIPLE MYELOMA
  2. DEXAMETHASONE [Concomitant]

REACTIONS (9)
  - DYSPNOEA EXERTIONAL [None]
  - FATIGUE [None]
  - BALANCE DISORDER [None]
  - PAIN [None]
  - TRANSPLANT [None]
  - SPINAL COMPRESSION FRACTURE [None]
  - NEUROPATHY PERIPHERAL [None]
  - DISCOMFORT [None]
  - BLOOD TEST ABNORMAL [None]
